FAERS Safety Report 14584943 (Version 2)
Quarter: 2018Q1

REPORT INFORMATION
  Report Type: Spontaneous
  Country: US (occurrence: US)
  Receive Date: 20180301
  Receipt Date: 20180306
  Transmission Date: 20180509
  Serious: Yes (Hospitalization, Other)
  Sender: FDA-Public Use
  Company Number: US-ASTRAZENECA-2018SE25168

PATIENT
  Age: 46 Year
  Sex: Female
  Weight: 88 kg

DRUGS (3)
  1. SEROQUEL XR [Suspect]
     Active Substance: QUETIAPINE FUMARATE
     Indication: PSYCHOMOTOR HYPERACTIVITY
     Route: 048
  2. SEROQUEL XR [Suspect]
     Active Substance: QUETIAPINE FUMARATE
     Indication: PSYCHOMOTOR HYPERACTIVITY
     Route: 048
     Dates: start: 2000
  3. SEROQUEL XR [Suspect]
     Active Substance: QUETIAPINE FUMARATE
     Indication: PSYCHOMOTOR HYPERACTIVITY
     Route: 048
     Dates: start: 1990

REACTIONS (18)
  - Bladder cancer [Unknown]
  - Hypertension [Unknown]
  - Renal cancer [Unknown]
  - Coma [Unknown]
  - Cardiac failure [Unknown]
  - Adverse event [Unknown]
  - Gait disturbance [Not Recovered/Not Resolved]
  - Off label use [Unknown]
  - Type 2 diabetes mellitus [Not Recovered/Not Resolved]
  - Mass [Unknown]
  - Pneumonia [Unknown]
  - Loss of personal independence in daily activities [Unknown]
  - Uterine haemorrhage [Unknown]
  - Product use in unapproved indication [Unknown]
  - Memory impairment [Unknown]
  - Speech disorder [Unknown]
  - Heart rate increased [Unknown]
  - Urinary incontinence [Not Recovered/Not Resolved]

NARRATIVE: CASE EVENT DATE: 2000
